FAERS Safety Report 10069745 (Version 2)
Quarter: 2014Q2

REPORT INFORMATION
  Report Type: Report from Study
  Country: CA (occurrence: CA)
  Receive Date: 20140410
  Receipt Date: 20140519
  Transmission Date: 20141212
  Serious: No
  Sender: FDA-Public Use
  Company Number: CA-009507513-1404CAN002158

PATIENT
  Age: 65 Year
  Sex: Male
  Weight: 70 kg

DRUGS (9)
  1. TEMODAL [Suspect]
     Dosage: THERAPY DURATION 12 MONTHS
     Route: 065
  2. TEMODAL [Suspect]
     Dosage: UNK
     Route: 065
  3. AVASTIN (SIMVASTATIN) [Suspect]
     Dosage: 710 MG, QOW
     Route: 042
  4. AVASTIN (SIMVASTATIN) [Suspect]
     Dosage: 650 MG, QOW
     Route: 042
  5. AVASTIN (SIMVASTATIN) [Suspect]
     Dosage: 650 MG, QOW
     Route: 042
  6. CLONAZEPAM [Concomitant]
     Dosage: 0.5 MG, UNK
     Route: 065
  7. DEXAMETHASONE [Concomitant]
     Dosage: 4.0 MG, UNK
     Route: 065
  8. METOCLOPRAMIDE [Concomitant]
     Dosage: 10.0 MG, UNK
     Route: 065
  9. RANITIDINE HYDROCHLORIDE [Concomitant]
     Dosage: 150.0 MG, UNK
     Route: 065

REACTIONS (26)
  - Neoplasm [Unknown]
  - Drug ineffective [Unknown]
  - White blood cell count increased [Unknown]
  - Weight fluctuation [Unknown]
  - Dyspnoea exertional [Unknown]
  - Hemianopia [Unknown]
  - Tongue discolouration [Unknown]
  - Tongue ulceration [Unknown]
  - Increased upper airway secretion [Unknown]
  - Skin lesion [Unknown]
  - Rectal haemorrhage [Unknown]
  - Lower gastrointestinal haemorrhage [Unknown]
  - Neutrophil count increased [Unknown]
  - Pulmonary embolism [Unknown]
  - Pyrexia [Unknown]
  - Rash [Unknown]
  - Rash [Unknown]
  - Rash [Unknown]
  - Fatigue [Unknown]
  - Fatigue [Unknown]
  - Lymphocyte count decreased [Unknown]
  - Platelet count decreased [Unknown]
  - Abdominal discomfort [Unknown]
  - Constipation [Unknown]
  - Contusion [Unknown]
  - Paralysis [Unknown]
